FAERS Safety Report 17102826 (Version 8)
Quarter: 2020Q4

REPORT INFORMATION
  Report Type: Report from Study
  Country: KR (occurrence: KR)
  Receive Date: 20191203
  Receipt Date: 20201211
  Transmission Date: 20210113
  Serious: Yes (Hospitalization)
  Sender: FDA-Public Use
  Company Number: KR-ROCHE-2487304

PATIENT
  Age: 71 Year
  Sex: Female
  Weight: 55.1 kg

DRUGS (39)
  1. FENTANYL. [Concomitant]
     Active Substance: FENTANYL
     Dosage: FORM STRENGTH: 12 MCG/H,
     Dates: start: 20191021, end: 20191023
  2. FENTANYL. [Concomitant]
     Active Substance: FENTANYL
     Route: 060
     Dates: start: 20191021, end: 20191021
  3. CHLORPHENIRAMIN [Concomitant]
     Active Substance: CHLORPHENIRAMINE MALEATE
     Indication: PRURITUS
     Route: 042
     Dates: start: 20191023, end: 20191024
  4. TARGIN [Concomitant]
     Active Substance: NALOXONE HYDROCHLORIDE\OXYCODONE HYDROCHLORIDE
     Dosage: FORM STRENGTH: OXYCODONE HCL 10MG/NALOXONE HCL 5MG,
     Route: 048
     Dates: start: 20191022, end: 20191023
  5. MORPHINE HYDROCHLORIDE [Concomitant]
     Active Substance: MORPHINE HYDROCHLORIDE
     Indication: CANCER PAIN
     Route: 042
     Dates: start: 20201023, end: 20201023
  6. CHLORHEXIDINE [Concomitant]
     Active Substance: CHLORHEXIDINE
     Dates: start: 20191107
  7. CALCIUM GLUCONATE. [Concomitant]
     Active Substance: CALCIUM GLUCONATE
     Indication: HYPERKALAEMIA
     Dates: start: 20191118, end: 20191118
  8. TROPHERINE [Concomitant]
     Indication: OPHTHALMOLOGICAL EXAMINATION
     Route: 031
     Dates: start: 20201022, end: 20201022
  9. RED BLOOD CELLS [Concomitant]
     Active Substance: HUMAN RED BLOOD CELL
     Indication: ANAEMIA
     Route: 042
     Dates: start: 20191113, end: 20191113
  10. COBIMETINIB. [Suspect]
     Active Substance: COBIMETINIB
     Indication: MALIGNANT MELANOMA
     Dosage: ON 11/NOV/2019, RECEIVED RECENT DOSE OF COBIMETINIB PRIOR TO EVENT ONSET
     Route: 048
     Dates: start: 20191024
  11. QUETIAPINE. [Concomitant]
     Active Substance: QUETIAPINE
     Route: 048
     Dates: start: 20191027, end: 20191106
  12. MEGESTROL [Concomitant]
     Active Substance: MEGESTROL
     Route: 048
     Dates: start: 20191023
  13. FENTANYL. [Concomitant]
     Active Substance: FENTANYL
     Dosage: FORM STRENGTH: 25 MCG/H,
     Dates: start: 20191024, end: 20191025
  14. FENTANYL. [Concomitant]
     Active Substance: FENTANYL
     Dosage: FORM STRENGTH: 87 MCG/H,
     Dates: start: 20191106, end: 20191118
  15. PERI OLIMEL N4E [Concomitant]
     Indication: NUTRITIONAL SUPPLEMENTATION
     Route: 042
     Dates: start: 20191023, end: 20191027
  16. FENTANYL. [Concomitant]
     Active Substance: FENTANYL
     Dosage: FORM STRENGTH: 62 MCG/H
     Dates: start: 20191026, end: 20191105
  17. TARGIN [Concomitant]
     Active Substance: NALOXONE HYDROCHLORIDE\OXYCODONE HYDROCHLORIDE
     Indication: CANCER PAIN
     Dosage: FORM STRENGTH: OXYCODONE HCL 5MG/NALOXONE HCL 2.5MG,
     Route: 048
     Dates: start: 20191001, end: 20191023
  18. TARGIN [Concomitant]
     Active Substance: NALOXONE HYDROCHLORIDE\OXYCODONE HYDROCHLORIDE
     Dosage: FORM STRENGTH: OXYCODONE HCL 20MG/NALOXONE HCL 10MG,
     Route: 048
     Dates: start: 20191024
  19. MAGNESIUM HYDROXIDE. [Concomitant]
     Active Substance: MAGNESIUM HYDROXIDE
     Indication: CONSTIPATION PROPHYLAXIS
     Route: 048
     Dates: start: 20191001, end: 20191020
  20. CINALONG [Concomitant]
     Indication: HYPERTENSION
     Route: 048
     Dates: start: 2014, end: 20191021
  21. LEVAN H [Concomitant]
     Indication: CANCER PAIN
     Route: 061
     Dates: start: 20190820
  22. MAGNESIUM OXIDE. [Concomitant]
     Active Substance: MAGNESIUM OXIDE
     Indication: CONSTIPATION
     Route: 048
     Dates: start: 20191021
  23. PERI OLIMEL N4E [Concomitant]
     Route: 042
     Dates: start: 20191107, end: 20191107
  24. QUETIAPINE. [Concomitant]
     Active Substance: QUETIAPINE
     Indication: DELIRIUM
     Route: 048
     Dates: start: 20191026
  25. CHLORPHENIRAMIN [Concomitant]
     Active Substance: CHLORPHENIRAMINE MALEATE
     Indication: PREMEDICATION
     Route: 042
     Dates: start: 20191113, end: 20191113
  26. ETIZOLAM [Concomitant]
     Active Substance: ETIZOLAM
     Indication: DELIRIUM
     Route: 048
     Dates: start: 20191027, end: 20191106
  27. FENTANYL. [Concomitant]
     Active Substance: FENTANYL
     Indication: CANCER PAIN
     Dosage: PATCH
     Dates: start: 20191123
  28. HUMULIN R [Concomitant]
     Active Substance: INSULIN HUMAN
     Indication: HYPERKALAEMIA
     Route: 042
     Dates: start: 20191118, end: 20191118
  29. HM95573 (RAF KINASE INHIBITOR) [Suspect]
     Active Substance: INVESTIGATIONAL PRODUCT
     Indication: MALIGNANT MELANOMA
     Dosage: ON 18/NOV/2019, RECEIVED LAST DOSE PRIOR TO EVENT ONSET
     Route: 048
     Dates: start: 20191024, end: 20191118
  30. LACTULOSE. [Concomitant]
     Active Substance: LACTULOSE
     Indication: CONSTIPATION
     Route: 048
     Dates: start: 20191025
  31. MEGESTROL [Concomitant]
     Active Substance: MEGESTROL
     Indication: DECREASED APPETITE
     Route: 048
     Dates: start: 20191023
  32. CHLORPHENIRAMINE. [Concomitant]
     Active Substance: CHLORPHENIRAMINE
     Indication: PRURITUS
     Dates: start: 20191123
  33. FENTANYL. [Concomitant]
     Active Substance: FENTANYL
     Route: 060
     Dates: start: 20191022, end: 20191105
  34. OXYCODONE HYDROCHLORIDE. [Concomitant]
     Active Substance: OXYCODONE HYDROCHLORIDE
     Indication: CANCER PAIN
     Route: 048
  35. MORPHINE SULFATE. [Concomitant]
     Active Substance: MORPHINE SULFATE
     Indication: CANCER PAIN
     Dosage: DOSE: 1MG/HR
     Route: 042
     Dates: start: 20191025, end: 20191026
  36. LEVOCETIRIZINE [Concomitant]
     Active Substance: LEVOCETIRIZINE
     Indication: PRURITUS
     Dates: start: 20191108
  37. LACTICARE HC [Concomitant]
     Indication: PRURITUS
     Route: 061
     Dates: start: 20191119
  38. FENTANYL. [Concomitant]
     Active Substance: FENTANYL
     Route: 060
     Dates: start: 20191106
  39. FURTMAN [Concomitant]
     Route: 042
     Dates: start: 20191107, end: 20191107

REACTIONS (1)
  - Ascites [Recovered/Resolved]

NARRATIVE: CASE EVENT DATE: 20191118
